FAERS Safety Report 14260663 (Version 1)
Quarter: 2017Q4

REPORT INFORMATION
  Report Type: Spontaneous
  Country: US (occurrence: US)
  Receive Date: 20171207
  Receipt Date: 20171207
  Transmission Date: 20180321
  Serious: No
  Sender: FDA-Public Use
  Company Number: US-PFIZER INC-2017524800

PATIENT
  Age: 67 Year
  Sex: Male
  Weight: 79.38 kg

DRUGS (2)
  1. CHANTIX [Suspect]
     Active Substance: VARENICLINE TARTRATE
     Indication: SMOKING CESSATION THERAPY
     Dosage: 1 MG, DAILY (ONE TABLET A DAY, AS DIRECTED WITH FOOD)
     Route: 048
     Dates: start: 201711, end: 2017
  2. CHANTIX [Suspect]
     Active Substance: VARENICLINE TARTRATE
     Dosage: 2 MG, DAILY (2 TABLETS A DAY)
     Route: 048
     Dates: start: 2017, end: 2017

REACTIONS (2)
  - Irritability [Recovering/Resolving]
  - Tobacco user [Recovering/Resolving]

NARRATIVE: CASE EVENT DATE: 201711
